FAERS Safety Report 5572340-4 (Version None)
Quarter: 2007Q4

REPORT INFORMATION
  Report Type: 
  Country: None (occurrence: None)
  Receive Date: 20071219
  Receipt Date: 20071204
  Transmission Date: 20080405
  Serious: Yes (Death, Hospitalization)
  Sender: FDA-Public Use
  Company Number: 2007002376

PATIENT
  Age: 77 Year
  Sex: Male

DRUGS (8)
  1. ERLOTINIB / PLACEBO (ERLOTINIB HCI) (TABLET) (ERLOTINIB HCI) [Suspect]
     Indication: NON-SMALL CELL LUNG CANCER
     Dosage: QD, ORAL
     Route: 048
     Dates: start: 20071011, end: 20071022
  2. ASPIRIN [Concomitant]
  3. SIMVASTATIN [Concomitant]
  4. OMEPRAZOLE [Concomitant]
  5. FUROSEMIDE [Concomitant]
  6. NICORANDIL (NICORANDIL) [Concomitant]
  7. PREDNISONE [Concomitant]
  8. FLOXACILLIN SODIUM [Concomitant]

REACTIONS (4)
  - GENERAL PHYSICAL HEALTH DETERIORATION [None]
  - HAEMOPTYSIS [None]
  - NON-SMALL CELL LUNG CANCER METASTATIC [None]
  - SUPRAVENTRICULAR TACHYCARDIA [None]
